FAERS Safety Report 14893102 (Version 5)
Quarter: 2018Q2

REPORT INFORMATION
  Report Type: Spontaneous
  Country: US (occurrence: US)
  Receive Date: 20180514
  Receipt Date: 20180605
  Transmission Date: 20180711
  Serious: Yes (Other)
  Sender: FDA-Public Use
  Company Number: US-AMGEN-USASP2018062657

PATIENT
  Age: 65 Year
  Sex: Female
  Weight: 81.65 kg

DRUGS (5)
  1. ORENCIA [Suspect]
     Active Substance: ABATACEPT
     Indication: PRODUCT USED FOR UNKNOWN INDICATION
     Dosage: UNK
     Route: 065
     Dates: end: 2018
  2. ENBREL [Suspect]
     Active Substance: ETANERCEPT
     Indication: RHEUMATOID ARTHRITIS
     Dosage: 50 MG, QWK
     Route: 058
     Dates: start: 20180402
  3. XELJANZ XR [Suspect]
     Active Substance: TOFACITINIB CITRATE
     Indication: RHEUMATOID ARTHRITIS
     Dosage: 11 MG, QD
     Route: 048
     Dates: start: 20180527, end: 201805
  4. XELJANZ XR [Suspect]
     Active Substance: TOFACITINIB CITRATE
     Dosage: 5 MG, BID
     Route: 048
     Dates: start: 201805
  5. METHOTREXATE. [Suspect]
     Active Substance: METHOTREXATE
     Indication: RHEUMATOID ARTHRITIS
     Dosage: 2.5 MG, (10 A WEEK)
     Route: 048
     Dates: start: 2006

REACTIONS (10)
  - Swelling [Recovered/Resolved]
  - Pain [Not Recovered/Not Resolved]
  - Cataract operation [Unknown]
  - Blister [Unknown]
  - Erythema [Unknown]
  - Urticaria [Recovered/Resolved]
  - Oropharyngeal pain [Recovered/Resolved]
  - Joint swelling [Unknown]
  - Rash [Unknown]
  - Joint warmth [Unknown]

NARRATIVE: CASE EVENT DATE: 2018
